FAERS Safety Report 11529359 (Version 1)
Quarter: 2015Q3

REPORT INFORMATION
  Report Type: Spontaneous
  Country: US (occurrence: None)
  Receive Date: 20150918
  Receipt Date: 20150918
  Transmission Date: 20151125
  Serious: Yes (Hospitalization)
  Sender: FDA-Public Use
  Company Number: None

PATIENT
  Age: 56 Year
  Sex: Male
  Weight: 118.3 kg

DRUGS (5)
  1. CAMPATH [Concomitant]
     Active Substance: ALEMTUZUMAB
  2. NULOJIX [Suspect]
     Active Substance: BELATACEPT
     Indication: RENAL TRANSPLANT
     Route: 042
     Dates: start: 20150909
  3. CELLCEPT [Suspect]
     Active Substance: MYCOPHENOLATE MOFETIL\MYCOPHENOLATE MOFETIL HYDROCHLORIDE
     Indication: RENAL TRANSPLANT
     Route: 048
     Dates: start: 20150912
  4. METHYLPREDNISOLONE. [Concomitant]
     Active Substance: METHYLPREDNISOLONE
  5. PREDNISONE. [Concomitant]
     Active Substance: PREDNISONE

REACTIONS (7)
  - Complications of transplanted kidney [None]
  - Hiccups [None]
  - Frequent bowel movements [None]
  - Pollakiuria [None]
  - Incisional hernia [None]
  - Post procedural complication [None]
  - Haemodialysis [None]

NARRATIVE: CASE EVENT DATE: 20150916
